FAERS Safety Report 5959735-1 (Version None)
Quarter: 2008Q4

REPORT INFORMATION
  Report Type: 
  Country: None (occurrence: None)
  Receive Date: 20081120
  Receipt Date: 20081110
  Transmission Date: 20090506
  Serious: Yes (Hospitalization)
  Sender: FDA-Public Use
  Company Number: DE-ASTRAZENECA-2008PK02457

PATIENT
  Age: 42 Year
  Sex: Male

DRUGS (4)
  1. SYMBICORT [Suspect]
     Dosage: 160/4.5 UG FOUR INHALATIONS DAILY
     Route: 055
  2. THEOPHYLLINE [Interacting]
  3. VENLAFAXINE HCL [Interacting]
     Route: 048
     Dates: start: 20080317, end: 20080612
  4. NEXIUM [Concomitant]
     Route: 048

REACTIONS (2)
  - DELIRIUM [None]
  - DRUG INTERACTION [None]
